FAERS Safety Report 4748029-8 (Version None)
Quarter: 2005Q3

REPORT INFORMATION
  Report Type: 
  Country: None (occurrence: None)
  Receive Date: 20050818
  Receipt Date: 20050808
  Transmission Date: 20060218
  Serious: No
  Sender: FDA-Public Use
  Company Number: 2005GB01523

PATIENT
  Age: 25 Year
  Sex: Male

DRUGS (6)
  1. QUETIAPINE FUMARATE [Suspect]
     Route: 048
     Dates: start: 20050501
  2. ZAPONEX [Suspect]
     Dosage: 100 AM AND 125 MG PM
     Route: 048
     Dates: start: 20050707
  3. DIAZEPAM [Concomitant]
     Dosage: 20 MG/DAY /PRN
     Route: 065
  4. IBUPROFEN [Concomitant]
     Route: 065
  5. HALOPERIDOL [Concomitant]
     Route: 065
  6. HYOSCINE HBR HYT [Concomitant]
     Route: 065
     Dates: start: 20050719

REACTIONS (1)
  - NEUTROPHIL COUNT DECREASED [None]
